FAERS Safety Report 5319499-1 (Version None)
Quarter: 2007Q2

REPORT INFORMATION
  Report Type: 
  Country: None (occurrence: None)
  Receive Date: 20070508
  Receipt Date: 20070427
  Transmission Date: 20071010
  Serious: Yes (Hospitalization)
  Sender: FDA-Public Use
  Company Number: FR-ELI_LILLY_AND_COMPANY-FR200701004223

PATIENT
  Age: 79 Year
  Sex: Female

DRUGS (13)
  1. FORTEO [Suspect]
     Indication: OSTEOPOROSIS
     Dosage: 20 UG, DAILY (1/D)
     Route: 058
     Dates: start: 20061122, end: 20070112
  2. SINTROM [Concomitant]
     Indication: PHLEBITIS
     Route: 048
  3. BEFIZAL [Concomitant]
     Indication: HYPERCHOLESTEROLAEMIA
     Route: 048
  4. TRANXENE [Concomitant]
     Route: 048
  5. TRIMETAZIDINE [Concomitant]
     Route: 048
  6. SECTRAL [Concomitant]
     Indication: HYPERTENSION
     Route: 048
  7. ICAZ [Concomitant]
     Indication: HYPERTENSION
     Route: 048
  8. FUROSEMIDE [Concomitant]
     Indication: HYPERTENSION
     Route: 048
  9. IRBESARTAN [Concomitant]
     Indication: HYPERTENSION
     Route: 048
  10. CATAPRES [Concomitant]
     Indication: HYPERTENSION
     Route: 048
  11. LEVOTHYROXINE SODIUM [Concomitant]
     Indication: HYPOTHYROIDISM
     Route: 048
  12. CACIT D3 [Concomitant]
     Indication: OSTEOPOROSIS
     Route: 048
  13. DIFFU K [Concomitant]
     Route: 048

REACTIONS (1)
  - LUNG INFECTION [None]
